FAERS Safety Report 9904438 (Version 2)
Quarter: 2014Q2

REPORT INFORMATION
  Report Type: Spontaneous
  Country: FR (occurrence: FR)
  Receive Date: 20140218
  Receipt Date: 20140414
  Transmission Date: 20141212
  Serious: Yes (Hospitalization)
  Sender: FDA-Public Use
  Company Number: FR-SA-2014SA016764

PATIENT
  Age: 47 Year
  Sex: Male
  Weight: 75 kg

DRUGS (1)
  1. LOVENOX [Suspect]
     Indication: PROPHYLAXIS
     Dosage: STRENGTH 0.4 ML
     Route: 065
     Dates: start: 20130922, end: 20131014

REACTIONS (2)
  - Thrombophlebitis [Recovered/Resolved with Sequelae]
  - Pulmonary embolism [Recovered/Resolved]
